FAERS Safety Report 12265987 (Version 3)
Quarter: 2016Q3

REPORT INFORMATION
  Report Type: Spontaneous
  Country: US (occurrence: US)
  Receive Date: 20160413
  Receipt Date: 20160711
  Transmission Date: 20161109
  Serious: Yes (Hospitalization, Other)
  Sender: FDA-Public Use
  Company Number: US-PFIZER INC-2016210472

PATIENT
  Age: 72 Year
  Sex: Male
  Weight: 91 kg

DRUGS (5)
  1. NITROSTAT [Suspect]
     Active Substance: NITROGLYCERIN
     Dosage: UNK
  2. CELEBREX [Suspect]
     Active Substance: CELECOXIB
     Dosage: 1 DF, DAILY
     Dates: start: 201408
  3. LYRICA [Suspect]
     Active Substance: PREGABALIN
     Dosage: UNK
  4. LYRICA [Suspect]
     Active Substance: PREGABALIN
     Dosage: 2 DF, DAILY
     Dates: start: 201511
  5. CELEBREX [Suspect]
     Active Substance: CELECOXIB
     Dosage: UNK

REACTIONS (4)
  - Fall [Recovered/Resolved]
  - Ankle fracture [Recovered/Resolved]
  - Feeling abnormal [Unknown]
  - Myocardial infarction [Recovered/Resolved]

NARRATIVE: CASE EVENT DATE: 201604
